FAERS Safety Report 8417114-1 (Version None)
Quarter: 2012Q2

REPORT INFORMATION
  Report Type: 
  Country: None (occurrence: None)
  Receive Date: 20120606
  Receipt Date: 20120531
  Transmission Date: 20120825
  Serious: Yes (Other)
  Sender: FDA-Public Use
  Company Number: AR-ROCHE-GNE323222

PATIENT
  Sex: Male

DRUGS (1)
  1. LUCENTIS [Suspect]
     Indication: DIABETIC RETINOPATHY
     Dosage: 1 AMP, 1/MONTH, DOSE=1 AMP, DAILY DOSE=.033 AMP, TOTAL DOSE=1 AMP
     Route: 050
     Dates: start: 20101201

REACTIONS (3)
  - THROMBOSIS [None]
  - BLINDNESS UNILATERAL [None]
  - EYE HAEMORRHAGE [None]
